FAERS Safety Report 4504225-6 (Version None)
Quarter: 2004Q4

REPORT INFORMATION
  Report Type: 
  Country: None (occurrence: None)
  Receive Date: 20041116
  Receipt Date: 20041116
  Transmission Date: 20050328
  Serious: Yes (Hospitalization)
  Sender: FDA-Public Use
  Company Number: None

PATIENT
  Age: 68 Year
  Sex: Male
  Weight: 75.2971 kg

DRUGS (17)
  1. ENOXAPARIN [Suspect]
     Indication: PULMONARY EMBOLISM
     Dosage: 70 MG Q 12H
     Dates: start: 20040721, end: 20040723
  2. WARFARIN [Suspect]
     Dosage: 2 MG DAILY
     Dates: start: 20040721, end: 20040722
  3. ACETAMINOPHEN [Concomitant]
  4. ALBUTEROL [Concomitant]
  5. ALLCLENZ SOLN [Concomitant]
  6. BISACODYL [Concomitant]
  7. DOCUSATE NA [Concomitant]
  8. ENOXAPARIN [Concomitant]
  9. FLUCONAZOLE [Concomitant]
  10. FOLIC ACID [Concomitant]
  11. GUAIFENESIN [Concomitant]
  12. LEVOTHYROXINE SODIUM [Concomitant]
  13. METOCLOPRAMIDE HCL [Concomitant]
  14. MILK OF MAGNESIA TAB [Concomitant]
  15. MORPHINE SULFATE [Concomitant]
  16. TRAMADOL HCL [Concomitant]
  17. WARFARIN [Concomitant]

REACTIONS (2)
  - ANAEMIA [None]
  - GASTROINTESTINAL HAEMORRHAGE [None]
